FAERS Safety Report 6909270-9 (Version None)
Quarter: 2010Q3

REPORT INFORMATION
  Report Type: 
  Country: None (occurrence: None)
  Receive Date: 20100805
  Receipt Date: 20100722
  Transmission Date: 20110219
  Serious: Yes (Other)
  Sender: FDA-Public Use
  Company Number: PHHY2010CH48003

PATIENT
  Age: 60 Year
  Sex: Male

DRUGS (8)
  1. ZOMETA [Suspect]
     Indication: METASTASES TO BONE
     Dosage: 4 MG MONTHLY
     Route: 042
  2. CHLORHEXIDINE GLUCONATE [Concomitant]
     Dosage: RINSE BID FOR 1 MINUTE
  3. AMINO PENICILLIN [Concomitant]
     Dosage: 1.2 G, TID FOR 3 DAYS
  4. AMINO PENICILLIN [Concomitant]
     Dosage: 1 G, TID FOR 2 WEEKS
     Route: 048
  5. AMINO PENICILLIN [Concomitant]
     Dosage: 1 G, BID FOR THE FOLLOWING 6 WEEKS
  6. CLAVULANATE POTASSIUM [Concomitant]
     Dosage: 1.2 G, TID FOR 3 DAYS
  7. CLAVULANATE POTASSIUM [Concomitant]
     Dosage: 1 G, TID FOR 2 WEEKS
     Route: 048
  8. CLAVULANATE POTASSIUM [Concomitant]
     Dosage: 1 G, BID FOR THE FOLLOWING 6 WEEKS

REACTIONS (15)
  - ACTINOMYCOSIS [None]
  - BACTERIAL INFECTION [None]
  - BONE DISORDER [None]
  - BONE SWELLING [None]
  - DEBRIDEMENT [None]
  - DISEASE RECURRENCE [None]
  - IMPAIRED HEALING [None]
  - METASTASES TO BONE [None]
  - OPEN WOUND [None]
  - OSTEITIS [None]
  - OSTEONECROSIS OF JAW [None]
  - PAIN IN JAW [None]
  - SEQUESTRECTOMY [None]
  - TOOTH EXTRACTION [None]
  - WOUND CLOSURE [None]
